FAERS Safety Report 11197441 (Version 5)
Quarter: 2016Q2

REPORT INFORMATION
  Report Type: Spontaneous
  Country: CA (occurrence: CA)
  Receive Date: 20150617
  Receipt Date: 20160511
  Transmission Date: 20160815
  Serious: Yes (Other)
  Sender: FDA-Public Use
  Company Number: CA-GLAXOSMITHKLINE INC.-CA2015GSK083699

PATIENT
  Sex: Female
  Weight: 62.13 kg

DRUGS (5)
  1. PRIMROSE OIL [Concomitant]
     Indication: PRODUCT USED FOR UNKNOWN INDICATION
     Dosage: 1000 MG, 1D
  2. BENLYSTA [Suspect]
     Active Substance: BELIMUMAB
     Indication: SYSTEMIC LUPUS ERYTHEMATOSUS
     Dosage: 500 MG, UNK
     Route: 042
  3. BENLYSTA [Suspect]
     Active Substance: BELIMUMAB
     Dosage: 500 MG, UNK
     Route: 042
  4. PREDNISONE. [Suspect]
     Active Substance: PREDNISONE
     Indication: PRODUCT USED FOR UNKNOWN INDICATION
     Dosage: UNK
  5. OMEGA-3 OIL [Concomitant]
     Indication: PRODUCT USED FOR UNKNOWN INDICATION
     Dosage: 1000 MG, 1D

REACTIONS (25)
  - Insomnia [Unknown]
  - Mood altered [Unknown]
  - Menopause [Unknown]
  - Pain [Unknown]
  - Malaise [Unknown]
  - Increased appetite [Unknown]
  - Product use issue [Unknown]
  - Weight fluctuation [Unknown]
  - Feeling abnormal [Unknown]
  - Amenorrhoea [Unknown]
  - Poor quality sleep [Unknown]
  - White blood cell count decreased [Not Recovered/Not Resolved]
  - Arthritis [Not Recovered/Not Resolved]
  - Frustration tolerance decreased [Unknown]
  - Pericarditis lupus [Unknown]
  - Systemic lupus erythematosus [Unknown]
  - Fatigue [Unknown]
  - Depressed mood [Unknown]
  - Crying [Unknown]
  - Anaemia [Not Recovered/Not Resolved]
  - Inferiority complex [Unknown]
  - Sensitisation [Unknown]
  - Lacrimation increased [Unknown]
  - Dizziness [Unknown]
  - Treatment noncompliance [Unknown]
